FAERS Safety Report 6106739-4 (Version None)
Quarter: 2009Q1

REPORT INFORMATION
  Report Type: 
  Country: None (occurrence: None)
  Receive Date: 20090302
  Receipt Date: 20090217
  Transmission Date: 20090719
  Serious: Yes (Hospitalization)
  Sender: FDA-Public Use
  Company Number: WAES 0803AUS00171

PATIENT
  Age: 58 Year
  Sex: Male

DRUGS (7)
  1. ISENTRESS [Suspect]
     Indication: HIV INFECTION
     Dosage: 400 MG/BID PO
     Route: 048
     Dates: start: 20080112, end: 20080305
  2. ETRAVIRINE [Suspect]
     Indication: HIV INFECTION
     Dosage: 200 MG/BID PO
     Route: 048
     Dates: start: 20080112, end: 20080305
  3. TENOFOVIR DISOPROXIL FUMARATE [Suspect]
     Indication: HIV INFECTION
     Dosage: 300 MG/DAILY PO
     Route: 048
     Dates: start: 20080112, end: 20080305
  4. DARUNAVIR [Suspect]
     Indication: HIV INFECTION
     Dosage: 600 MG/DAILY PO
     Route: 048
     Dates: start: 20080112, end: 20080305
  5. RITONAVIR [Suspect]
     Indication: HIV INFECTION
     Dosage: 100 MG/BID PO
     Route: 048
     Dates: start: 20080112, end: 20080305
  6. BACTRIM DS [Concomitant]
  7. OXYCONTIN [Concomitant]

REACTIONS (6)
  - ENCEPHALOPATHY [None]
  - HEPATIC CIRRHOSIS [None]
  - HEPATIC FAILURE [None]
  - INTERNATIONAL NORMALISED RATIO INCREASED [None]
  - SMALL INTESTINAL OBSTRUCTION [None]
  - THROMBOCYTOPENIA [None]
